FAERS Safety Report 18767467 (Version 1)
Quarter: 2021Q1

REPORT INFORMATION
  Report Type: Spontaneous
  Country: US (occurrence: US)
  Receive Date: 20210121
  Receipt Date: 20210121
  Transmission Date: 20210419
  Serious: Yes (Death)
  Sender: FDA-Public Use
  Company Number: US-PFIZER INC-2021018500

PATIENT
  Sex: Male

DRUGS (3)
  1. BUPIVACAINE. [Concomitant]
     Active Substance: BUPIVACAINE
     Dosage: BUPIVACAINE 0.05% WITH MORPHINE 100 MG/ML AT 14 ML/H.
     Route: 008
  2. DROPERIDOL. [Suspect]
     Active Substance: DROPERIDOL
     Dosage: 1.25 MG
     Route: 042
  3. MORPHINE [Concomitant]
     Active Substance: MORPHINE
     Dosage: BUPIVACAINE 0.05% WITH MORPHINE 100 MG/ML AT 14 ML/H.

REACTIONS (3)
  - Brain injury [Fatal]
  - Ventricular fibrillation [Fatal]
  - Cardiac arrest [Fatal]
